FAERS Safety Report 8855841 (Version 1)
Quarter: 2012Q4

REPORT INFORMATION
  Report Type: Spontaneous
  Country: US (occurrence: None)
  Receive Date: 20121022
  Receipt Date: 20121022
  Transmission Date: 20130627
  Serious: Yes (Disabling)
  Sender: FDA-Public Use
  Company Number: None

PATIENT
  Sex: Female
  Weight: 78.93 kg

DRUGS (1)
  1. CYMBALTA [Suspect]
     Dosage: daily

REACTIONS (4)
  - Lichen sclerosus [None]
  - Emotional disorder [None]
  - Malaise [None]
  - Dizziness [None]
